FAERS Safety Report 7900402-2 (Version None)
Quarter: 2011Q4

REPORT INFORMATION
  Report Type: 
  Country: None (occurrence: None)
  Receive Date: 20111108
  Receipt Date: 20111101
  Transmission Date: 20120403
  Serious: No
  Sender: FDA-Public Use
  Company Number: US-PFIZER INC-2011267512

PATIENT
  Age: 76 Year
  Sex: Male
  Weight: 63.492 kg

DRUGS (2)
  1. TORISEL [Suspect]
     Indication: RENAL CELL CARCINOMA
     Dosage: 25 MG, WEEKLY
     Route: 042
     Dates: start: 20110801
  2. SORAFENIB [Concomitant]
     Indication: RENAL CELL CARCINOMA
     Dosage: UNK

REACTIONS (1)
  - SALIVARY HYPERSECRETION [None]
